FAERS Safety Report 24670618 (Version 4)
Quarter: 2025Q1

REPORT INFORMATION
  Report Type: Spontaneous
  Country: US (occurrence: US)
  Receive Date: 20241127
  Receipt Date: 20250204
  Transmission Date: 20250409
  Serious: Yes (Hospitalization, Other)
  Sender: INCYTE
  Company Number: US-INCYTE CORPORATION-2024IN012518

PATIENT

DRUGS (13)
  1. JAKAFI [Suspect]
     Active Substance: RUXOLITINIB
     Indication: Primary myelofibrosis
     Route: 065
     Dates: start: 20220617, end: 20231024
  2. JAKAFI [Suspect]
     Active Substance: RUXOLITINIB
     Dosage: 10 MILLIGRAM, BID
     Route: 048
     Dates: start: 20231109, end: 20241115
  3. JAKAFI [Suspect]
     Active Substance: RUXOLITINIB
     Dosage: 5 MILLIGRAM, BID
     Route: 048
     Dates: start: 20241116, end: 20241123
  4. JAKAFI [Suspect]
     Active Substance: RUXOLITINIB
     Dosage: 10 MILLIGRAM, BID
     Route: 048
     Dates: start: 20241124, end: 20241125
  5. NAVITOCLAX [Suspect]
     Active Substance: NAVITOCLAX
     Indication: Myelofibrosis
     Dosage: 100 MILLIGRAM, QD
     Route: 048
     Dates: start: 20231109, end: 20241115
  6. AMLODIPINE MALEATE [Concomitant]
     Active Substance: AMLODIPINE MALEATE
     Indication: Prophylaxis
     Dosage: 10 MILLIGRAM, QD
     Route: 065
     Dates: start: 20231117
  7. LIDOCAINE [Concomitant]
     Active Substance: LIDOCAINE
     Indication: Pain
     Dosage: 200 MILLILITER, Q4H
     Route: 065
     Dates: start: 20231117
  8. CAMPHOR;MENTHOL [Concomitant]
     Indication: Pruritus
     Route: 065
     Dates: start: 20231214
  9. ACYCLOVIR [Concomitant]
     Active Substance: ACYCLOVIR
     Indication: Antiviral prophylaxis
     Dosage: 400 MILLIGRAM, BID
     Route: 065
     Dates: start: 20240205
  10. TAMSULOSIN HYDROCHLORIDE [Concomitant]
     Active Substance: TAMSULOSIN HYDROCHLORIDE
     Indication: Muscle relaxant therapy
     Dosage: 0.4 MILLIGRAM, QD
     Route: 065
     Dates: start: 20240208
  11. CHOLECALCIFEROL [Concomitant]
     Active Substance: CHOLECALCIFEROL
     Indication: Nutritional supplementation
     Dosage: 1000 INTERNATIONAL UNIT, QD
     Route: 065
     Dates: start: 20240424
  12. ASPIRIN [Concomitant]
     Active Substance: ASPIRIN
     Indication: Hypertension
     Dosage: 81 MILLIGRAM, QD
     Route: 065
     Dates: start: 20240506
  13. ALLOPURINOL [Concomitant]
     Active Substance: ALLOPURINOL
     Indication: Blood uric acid increased
     Dosage: 200 MILLIGRAM, QD
     Route: 065
     Dates: start: 20240507

REACTIONS (14)
  - Septic shock [Recovered/Resolved]
  - Prostate cancer [Unknown]
  - Chronic kidney disease [Not Recovered/Not Resolved]
  - Aspiration [Unknown]
  - Pneumonia aspiration [Unknown]
  - Acute kidney injury [Unknown]
  - Cardiac dysfunction [Recovering/Resolving]
  - Respiratory failure [Recovering/Resolving]
  - Escherichia test positive [Unknown]
  - Night sweats [Not Recovered/Not Resolved]
  - Leukocytosis [Not Recovered/Not Resolved]
  - Ureterolithiasis [Unknown]
  - Urinary tract infection [Unknown]
  - Anaemia [Not Recovered/Not Resolved]

NARRATIVE: CASE EVENT DATE: 20230101
